FAERS Safety Report 23366994 (Version 1)
Quarter: 2024Q1

REPORT INFORMATION
  Report Type: Spontaneous
  Country: US (occurrence: US)
  Receive Date: 20240104
  Receipt Date: 20240104
  Transmission Date: 20240410
  Serious: No
  Sender: FDA-Public Use
  Company Number: US-BRISTOL-MYERS SQUIBB COMPANY-2024-001796

PATIENT
  Age: 69 Year
  Sex: Female
  Weight: 39.01 kg

DRUGS (1)
  1. POMALYST [Suspect]
     Active Substance: POMALIDOMIDE
     Indication: Plasma cell myeloma
     Dosage: TAKE 1 CAPSULE DAILY MONDAY -FRIDAY FOR 2 WEEKS OUT OF 4 WEEKS
     Route: 048

REACTIONS (2)
  - Irritable bowel syndrome [Not Recovered/Not Resolved]
  - Off label use [Unknown]
